FAERS Safety Report 6644374-X (Version None)
Quarter: 2010Q1

REPORT INFORMATION
  Report Type: 
  Country: None (occurrence: None)
  Receive Date: 20100304
  Receipt Date: 20090310
  Transmission Date: 20100710
  Serious: Yes (Other)
  Sender: FDA-Public Use
  Company Number: US-002605

PATIENT
  Age: 27 Year
  Sex: Male
  Weight: 81 kg

DRUGS (2)
  1. ISOVUE-300 [Suspect]
     Indication: ABDOMINAL PAIN
     Dosage: 100ML QD INTRAVENOUS (NOT OTHERWISE SPECIFIED)
     Route: 042
     Dates: start: 20090308, end: 20090308
  2. ISOVUE-300 [Suspect]
     Indication: COMPUTERISED TOMOGRAM
     Dosage: 100ML QD INTRAVENOUS (NOT OTHERWISE SPECIFIED)
     Route: 042
     Dates: start: 20090308, end: 20090308

REACTIONS (1)
  - ANAPHYLACTIC SHOCK [None]
